FAERS Safety Report 9785653 (Version 1)
Quarter: 2013Q4

REPORT INFORMATION
  Report Type: Spontaneous
  Country: US (occurrence: None)
  Receive Date: 20131223
  Receipt Date: 20131223
  Transmission Date: 20140711
  Serious: No
  Sender: FDA-Public Use
  Company Number: EUS-2012-00383

PATIENT
  Age: 4 Year
  Sex: 0

DRUGS (3)
  1. ERWINASE (ASPARAGINASE) [Suspect]
     Indication: ACUTE LYMPHOCYTIC LEUKAEMIA
     Dosage: (20000 IU)  (NOT OTHERWISE SPECIFIED)
     Route: 042
     Dates: start: 20120611, end: 20120615
  2. METHOTREXATE (METHOTREXATE) (METHOTREXATE) [Concomitant]
  3. VINCRISTINE (VINCRISTINE) (VINCRISTIINE) [Concomitant]

REACTIONS (1)
  - Urticaria [None]
